FAERS Safety Report 18527740 (Version 1)
Quarter: 2020Q4

REPORT INFORMATION
  Report Type: Report from Study
  Country: NL (occurrence: NL)
  Receive Date: 20201120
  Receipt Date: 20201120
  Transmission Date: 20210114
  Serious: Yes (Hospitalization, Other)
  Sender: FDA-Public Use
  Company Number: NL-KYOWAKIRIN-2020BKK018522

PATIENT

DRUGS (2)
  1. MOGAMULIZUMAB [Suspect]
     Active Substance: MOGAMULIZUMAB
     Indication: CUTANEOUS T-CELL LYMPHOMA
     Dosage: 1 MG/KG
     Route: 065
     Dates: start: 20200422, end: 20200422
  2. MOGAMULIZUMAB [Suspect]
     Active Substance: MOGAMULIZUMAB
     Dosage: 1 MG/KG
     Route: 065
     Dates: start: 20201005, end: 20201102

REACTIONS (30)
  - CT hypotension complex [Unknown]
  - Pain [Unknown]
  - Lymphadenopathy mediastinal [Unknown]
  - Cardiac failure [Unknown]
  - Hypotension [Unknown]
  - Hepatic steatosis [Unknown]
  - Cardiomegaly [Unknown]
  - Aortic arteriosclerosis [Unknown]
  - Arteriosclerosis coronary artery [Unknown]
  - Pneumonia viral [Unknown]
  - Ischaemic hepatitis [Unknown]
  - Pleural effusion [Unknown]
  - Abdominal pain [Recovered/Resolved]
  - Dyspnoea [Recovered/Resolved]
  - Oxygen saturation decreased [Unknown]
  - Constipation [Unknown]
  - Ascites [Unknown]
  - Atelectasis [Unknown]
  - Tumour associated fever [Unknown]
  - Renal failure [Unknown]
  - Abdominal pain upper [Unknown]
  - Hypophagia [Unknown]
  - Hepatic enzyme abnormal [Unknown]
  - Lung consolidation [Unknown]
  - Cardiac disorder [Unknown]
  - Pulmonary sepsis [Unknown]
  - Lung opacity [Unknown]
  - Cholelithiasis [Unknown]
  - Escherichia urinary tract infection [Unknown]
  - Sepsis [Unknown]

NARRATIVE: CASE EVENT DATE: 2020
